FAERS Safety Report 8184069-7 (Version None)
Quarter: 2012Q1

REPORT INFORMATION
  Report Type: 
  Country: None (occurrence: None)
  Receive Date: 20120305
  Receipt Date: 20120227
  Transmission Date: 20120608
  Serious: Yes (Death)
  Sender: FDA-Public Use
  Company Number: CHPA2012US003741

PATIENT
  Age: 59 Year
  Sex: Female

DRUGS (6)
  1. DIPHENHYDRAMINE HCL [Suspect]
     Dosage: UNK, UNK
     Route: 048
  2. DRUG THERAPY NOS [Suspect]
     Dosage: UNK, UNK
     Route: 048
  3. PROCHLORPERAZINE [Suspect]
     Dosage: UNK, UNK
     Route: 048
  4. METHADON HCL TAB [Suspect]
     Dosage: UNK, UNK
     Route: 048
  5. ACETAMINOPHEN AND HYDROCODONE BITARTRATE [Suspect]
     Dosage: UNK, UNK
     Route: 048
  6. ACETAMINOPHEN [Suspect]
     Dosage: UNK, UNK
     Route: 048

REACTIONS (1)
  - COMPLETED SUICIDE [None]
